FAERS Safety Report 4951846-2 (Version None)
Quarter: 2006Q1

REPORT INFORMATION
  Report Type: 
  Country: None (occurrence: None)
  Receive Date: 20060323
  Receipt Date: 20050919
  Transmission Date: 20060701
  Serious: Yes (Hospitalization, Other)
  Sender: FDA-Public Use
  Company Number: US-MERCK-0509USA02851

PATIENT
  Age: 47 Year
  Sex: Male
  Weight: 155 kg

DRUGS (4)
  1. VIOXX [Suspect]
     Indication: ARTHRALGIA
     Route: 048
     Dates: start: 19990101, end: 20000101
  2. CELEBREX [Suspect]
     Route: 048
  3. BEXTRA [Suspect]
     Route: 048
  4. CODEINE [Concomitant]
     Route: 065

REACTIONS (5)
  - CARPAL TUNNEL SYNDROME [None]
  - DIABETES MELLITUS [None]
  - HERNIA [None]
  - MYOCARDIAL INFARCTION [None]
  - PULMONARY OEDEMA [None]
